FAERS Safety Report 7326352-0 (Version None)
Quarter: 2011Q1

REPORT INFORMATION
  Report Type: 
  Country: None (occurrence: None)
  Receive Date: 20110302
  Receipt Date: 20110222
  Transmission Date: 20110831
  Serious: No
  Sender: FDA-Public Use
  Company Number: JP-SANOFI-AVENTIS-2011SA006782

PATIENT
  Age: 54 Year
  Sex: Female
  Weight: 55 kg

DRUGS (3)
  1. GRANISETRON HCL [Concomitant]
     Indication: PREMEDICATION
     Dates: start: 20100907, end: 20110201
  2. TAXOTERE [Suspect]
     Indication: BREAST CANCER RECURRENT
     Dosage: 70 MG/M2VIA CV PORT
     Route: 041
     Dates: start: 20100907, end: 20110201
  3. SOLU-CORTEF [Concomitant]
     Indication: PREMEDICATION
     Dates: start: 20100907, end: 20110201

REACTIONS (1)
  - GENERALISED OEDEMA [None]
